FAERS Safety Report 24526789 (Version 1)
Quarter: 2024Q4

REPORT INFORMATION
  Report Type: Report from Study
  Country: US (occurrence: US)
  Receive Date: 20241021
  Receipt Date: 20241021
  Transmission Date: 20250115
  Serious: No
  Sender: ROCHE
  Company Number: US-ROCHE-3505008

PATIENT
  Age: 66 Year
  Sex: Male

DRUGS (3)
  1. ZELBORAF [Suspect]
     Active Substance: VEMURAFENIB
     Indication: Malignant melanoma
     Dosage: 4 TABLETS BY MOUTH (960MG) TWICE A DAY 3 WEEKS ON, 1 WEEK OFF
     Route: 048
  2. ZELBORAF [Suspect]
     Active Substance: VEMURAFENIB
     Indication: Lung neoplasm malignant
  3. COTELLIC [Suspect]
     Active Substance: COBIMETINIB
     Indication: Product used for unknown indication
     Dosage: 3 TABLETS BY MOUTH (60MG) EVERY DAY 3 WEEKS ON, 1 WEEK OFF
     Route: 048

REACTIONS (1)
  - Skin disorder [Unknown]
